FAERS Safety Report 10067460 (Version 1)
Quarter: 2014Q2

REPORT INFORMATION
  Report Type: Spontaneous
  Country: US (occurrence: US)
  Receive Date: 20140409
  Receipt Date: 20140409
  Transmission Date: 20141212
  Serious: Yes (Hospitalization)
  Sender: FDA-Public Use
  Company Number: US-TEVA-473774USA

PATIENT
  Age: 54 Year
  Sex: Female
  Weight: 136.2 kg

DRUGS (7)
  1. NUVIGIL [Suspect]
     Indication: SLEEP APNOEA SYNDROME
     Dates: end: 201403
  2. NUVIGIL [Suspect]
     Indication: NARCOLEPSY
  3. METFORMIN [Concomitant]
     Indication: DIABETES MELLITUS
  4. PREDNISONE [Concomitant]
     Indication: CHRONIC OBSTRUCTIVE PULMONARY DISEASE
  5. DIABETIC MEDICATIONS [Concomitant]
     Indication: DIABETES MELLITUS
  6. COPD MEDICATIONS [Concomitant]
     Indication: CHRONIC OBSTRUCTIVE PULMONARY DISEASE
  7. THYROID MEDICATIONS [Concomitant]
     Indication: THYROID DISORDER

REACTIONS (3)
  - Chronic obstructive pulmonary disease [Recovered/Resolved]
  - Depressed mood [Not Recovered/Not Resolved]
  - Mood swings [Not Recovered/Not Resolved]
